FAERS Safety Report 25651178 (Version 1)
Quarter: 2025Q3

REPORT INFORMATION
  Report Type: Spontaneous
  Country: CN (occurrence: CN)
  Receive Date: 20250806
  Receipt Date: 20250806
  Transmission Date: 20251020
  Serious: Yes (Other)
  Sender: PFIZER
  Company Number: CN-PFIZER INC-PV202500092779

PATIENT
  Age: 68 Year
  Sex: Female
  Weight: 58 kg

DRUGS (18)
  1. EPIRUBICIN HYDROCHLORIDE [Suspect]
     Active Substance: EPIRUBICIN HYDROCHLORIDE
     Indication: Hepatic cancer
     Dosage: 40 MG, 1X/DAY
     Route: 013
     Dates: start: 20250620, end: 20250620
  2. EPIRUBICIN HYDROCHLORIDE [Suspect]
     Active Substance: EPIRUBICIN HYDROCHLORIDE
     Route: 013
     Dates: start: 20250721, end: 20250721
  3. EPIRUBICIN HYDROCHLORIDE [Suspect]
     Active Substance: EPIRUBICIN HYDROCHLORIDE
     Route: 013
     Dates: start: 20250721, end: 20250721
  4. OXALIPLATIN [Suspect]
     Active Substance: OXALIPLATIN
     Indication: Hepatic cancer
     Dosage: 200 MG, 1X/DAY
     Route: 013
     Dates: start: 20250620, end: 20250620
  5. OXALIPLATIN [Suspect]
     Active Substance: OXALIPLATIN
     Dosage: 100 MG, 1X/DAY
     Route: 013
     Dates: start: 20250721, end: 20250721
  6. TISLELIZUMAB [Suspect]
     Active Substance: TISLELIZUMAB
     Indication: Hepatic cancer
     Dosage: 200 MG, 1X/DAY
     Route: 041
     Dates: start: 20250702, end: 20250702
  7. FLUOROURACIL [Suspect]
     Active Substance: FLUOROURACIL
     Indication: Hepatic cancer
     Dosage: 1 G, 1X/DAY
     Route: 013
     Dates: start: 20250620, end: 20250620
  8. FLUOROURACIL [Suspect]
     Active Substance: FLUOROURACIL
     Route: 013
     Dates: start: 20250721, end: 20250721
  9. FLUOROURACIL [Suspect]
     Active Substance: FLUOROURACIL
     Route: 013
     Dates: start: 20250721, end: 20250721
  10. LENVATINIB MESYLATE [Suspect]
     Active Substance: LENVATINIB MESYLATE
     Indication: Hepatic cancer
     Dosage: 8 MG, 1X/DAY
     Route: 048
     Dates: start: 20250620, end: 20250719
  11. SODIUM CHLORIDE [Concomitant]
     Active Substance: SODIUM CHLORIDE
     Indication: Vehicle solution use
     Dosage: 150 ML, 1X/DAY
     Route: 013
     Dates: start: 20250620, end: 20250620
  12. SODIUM CHLORIDE [Concomitant]
     Active Substance: SODIUM CHLORIDE
     Route: 013
     Dates: start: 20250721, end: 20250721
  13. SODIUM CHLORIDE [Concomitant]
     Active Substance: SODIUM CHLORIDE
     Route: 013
     Dates: start: 20250721, end: 20250721
  14. SODIUM CHLORIDE [Concomitant]
     Active Substance: SODIUM CHLORIDE
     Indication: Vehicle solution use
     Dosage: 100 ML, 1X/DAY
     Route: 041
     Dates: start: 20250702, end: 20250702
  15. IODINATED OIL [Concomitant]
     Indication: Imaging procedure
     Dosage: 3 ML, 1X/DAY
     Route: 013
     Dates: start: 20250620, end: 20250620
  16. IODINATED OIL [Concomitant]
     Dosage: 3 ML, 1X/DAY
     Route: 013
     Dates: start: 20250721, end: 20250721
  17. DEXTROSE [Concomitant]
     Active Substance: DEXTROSE MONOHYDRATE
     Indication: Vehicle solution use
     Dosage: 150 ML, 1X/DAY
     Route: 013
     Dates: start: 20250620, end: 20250620
  18. DEXTROSE [Concomitant]
     Active Substance: DEXTROSE MONOHYDRATE
     Dosage: 150 ML, 1X/DAY
     Route: 013
     Dates: start: 20250721, end: 20250721

REACTIONS (2)
  - Palmar-plantar erythrodysaesthesia syndrome [Recovering/Resolving]
  - Off label use [Unknown]

NARRATIVE: CASE EVENT DATE: 20250620
